FAERS Safety Report 9366139 (Version 2)
Quarter: 2013Q3

REPORT INFORMATION
  Report Type: Spontaneous
  Country: US (occurrence: US)
  Receive Date: 20130625
  Receipt Date: 20130820
  Transmission Date: 20140515
  Serious: Yes (Life-Threatening, Hospitalization)
  Sender: FDA-Public Use
  Company Number: US-JNJFOC-20130610365

PATIENT
  Age: 32 Year
  Sex: Female
  Weight: 81.65 kg

DRUGS (20)
  1. STELARA [Suspect]
     Indication: PSORIASIS
     Route: 058
     Dates: start: 20121126
  2. STELARA [Suspect]
     Indication: PSORIASIS
     Route: 058
     Dates: start: 20120830
  3. STELARA [Suspect]
     Indication: PSORIASIS
     Route: 058
     Dates: start: 20130221
  4. STELARA [Suspect]
     Indication: PSORIASIS
     Route: 058
     Dates: start: 20120531
  5. STELARA [Suspect]
     Indication: PSORIASIS
     Route: 058
     Dates: start: 20120301
  6. STELARA [Suspect]
     Indication: PSORIASIS
     Route: 058
     Dates: start: 20111215
  7. STELARA [Suspect]
     Indication: PSORIASIS
     Route: 058
     Dates: start: 20110922
  8. STELARA [Suspect]
     Indication: PSORIASIS
     Route: 058
     Dates: start: 20110825
  9. ADVIL [Concomitant]
     Route: 065
  10. ACICLOVIR [Concomitant]
     Dosage: AT BEDTIME
     Route: 065
  11. ZANTAC [Concomitant]
     Route: 065
  12. MAXALT [Concomitant]
     Route: 065
  13. FIORICET [Concomitant]
     Route: 065
  14. KETOCONAZOLE [Concomitant]
     Dosage: ON THURSDAY
     Route: 065
  15. ZANTAC [Concomitant]
     Dosage: AT BEDTIME
     Route: 048
  16. ALBUTEROL [Concomitant]
     Dosage: 2-4 PUFFS, AS NEEDED
     Route: 055
  17. PULMICORT FLEXHALER [Concomitant]
     Dosage: 2-4 PUFFS, AS NEEDED
     Route: 065
  18. CLOBETASOL [Concomitant]
     Indication: SKIN DISORDER
     Route: 061
  19. MONONESSA [Concomitant]
     Route: 048
  20. MONONESSA [Concomitant]
     Route: 048

REACTIONS (4)
  - Respiratory failure [Recovering/Resolving]
  - Anxiety [Unknown]
  - Pain in extremity [Unknown]
  - Asthma [Recovering/Resolving]
